FAERS Safety Report 23138152 (Version 1)
Quarter: 2023Q4

REPORT INFORMATION
  Report Type: Report from Study
  Country: BR (occurrence: BR)
  Receive Date: 20231102
  Receipt Date: 20231102
  Transmission Date: 20240109
  Serious: Yes (Other)
  Sender: FDA-Public Use
  Company Number: BR-002147023-NVSC2023BR187230

PATIENT
  Sex: Female

DRUGS (2)
  1. RIBOCICLIB [Suspect]
     Active Substance: RIBOCICLIB
     Indication: Breast cancer
     Dosage: UNK
     Route: 065
  2. RIBOCICLIB [Suspect]
     Active Substance: RIBOCICLIB
     Dosage: 3 DOSAGE FORM ( 3 TABLETS)
     Route: 065

REACTIONS (10)
  - Diabetes mellitus [Recovered/Resolved]
  - Liver disorder [Unknown]
  - Hypoglycaemia [Unknown]
  - Limb injury [Unknown]
  - Abscess [Unknown]
  - Malaise [Unknown]
  - Confusional state [Recovered/Resolved]
  - Decreased appetite [Unknown]
  - Dysgeusia [Unknown]
  - Urinary tract infection [Unknown]
